FAERS Safety Report 4354395-8 (Version None)
Quarter: 2004Q2

REPORT INFORMATION
  Report Type: 
  Country: None (occurrence: None)
  Receive Date: 20040503
  Receipt Date: 20040420
  Transmission Date: 20050107
  Serious: Yes (Death, Hospitalization)
  Sender: FDA-Public Use
  Company Number: 2004027234

PATIENT
  Age: 58 Year
  Sex: Female
  Weight: 80 kg

DRUGS (3)
  1. PRAZOSIN HCL [Suspect]
     Indication: ILL-DEFINED DISORDER
     Dosage: 5 MG (DAILY); ORAL (SEE IMAGE)
     Route: 048
     Dates: end: 20040211
  2. DIGOXIN [Suspect]
     Indication: ILL-DEFINED DISORDER
     Dosage: UNK (DAILY); ORAL  (SEE IMAGE)
     Route: 048
     Dates: start: 20040209, end: 20040211
  3. CAPTOPRIL [Suspect]
     Indication: ILL-DEFINED DISORDER
     Dosage: 25 MG (DAILY); ORAL (SEE IMAGE)
     Route: 048
     Dates: end: 20040301

REACTIONS (10)
  - ACCIDENTAL OVERDOSE [None]
  - ARRHYTHMIA [None]
  - ATRIAL FIBRILLATION [None]
  - BLOOD CULTURE POSITIVE [None]
  - BRADYARRHYTHMIA [None]
  - CIRCULATORY COLLAPSE [None]
  - LIVER DISORDER [None]
  - SOMNOLENCE [None]
  - STAPHYLOCOCCAL INFECTION [None]
  - SUPRAVENTRICULAR EXTRASYSTOLES [None]
